FAERS Safety Report 8367140-6 (Version None)
Quarter: 2012Q2

REPORT INFORMATION
  Report Type: 
  Country: None (occurrence: None)
  Receive Date: 20120517
  Receipt Date: 20120502
  Transmission Date: 20120825
  Serious: Yes (Hospitalization)
  Sender: FDA-Public Use
  Company Number: GB-WATSON-2012-08182

PATIENT
  Age: 14 Year
  Sex: Female
  Weight: 59.5 kg

DRUGS (5)
  1. ACETAMINOPHEN [Concomitant]
     Indication: PRODUCT USED FOR UNKNOWN INDICATION
     Dosage: 500 MG, PRN
     Route: 065
  2. PIZOTIFEN [Concomitant]
     Indication: PRODUCT USED FOR UNKNOWN INDICATION
     Dosage: 1.5 MG, DAILY AT NIGHT
     Route: 065
     Dates: start: 20120101
  3. SUMATRIPTAN SUCCINATE [Suspect]
     Indication: MIGRAINE
     Dosage: 100 MG, UNK, IMMEDIATELY. STAT DOSE
     Route: 048
     Dates: start: 20120420
  4. SYMBICORT [Concomitant]
     Indication: PRODUCT USED FOR UNKNOWN INDICATION
     Dosage: 2 DF, BID
     Route: 065
  5. MONTELUKAST [Concomitant]
     Indication: PRODUCT USED FOR UNKNOWN INDICATION
     Dosage: 5 MG, DAILY
     Route: 065

REACTIONS (5)
  - HYPOAESTHESIA [None]
  - CHEST DISCOMFORT [None]
  - DYSPNOEA [None]
  - GAIT DISTURBANCE [None]
  - NECK PAIN [None]
